FAERS Safety Report 9124140 (Version 1)
Quarter: 2013Q1

REPORT INFORMATION
  Report Type: Spontaneous
  Country: FR (occurrence: FR)
  Receive Date: 20130116
  Receipt Date: 20130116
  Transmission Date: 20140127
  Serious: Yes (Hospitalization)
  Sender: FDA-Public Use
  Company Number: FR-VERTEX PHARMACEUTICALS INC.-2013-000629

PATIENT
  Age: 49 Year
  Sex: Female

DRUGS (6)
  1. INCIVO [Suspect]
     Indication: CHRONIC HEPATITIS C
     Dosage: 750 G, TID
     Route: 048
     Dates: start: 20111212, end: 20120227
  2. PEGASYS [Concomitant]
     Dates: start: 20111212
  3. COPEGUS [Concomitant]
     Dates: start: 20111212
  4. EFFEXOR [Concomitant]
     Dosage: 75 MG, UNK
  5. STILNOX [Concomitant]
  6. DERMOVAL [Concomitant]

REACTIONS (10)
  - Rash maculo-papular [Recovered/Resolved]
  - Leukopenia [Unknown]
  - Pruritus [Recovered/Resolved]
  - Thrombocytopenia [Unknown]
  - Pain [Unknown]
  - Face oedema [Unknown]
  - Erythema [Unknown]
  - Weight increased [Unknown]
  - Fatigue [Unknown]
  - Drug ineffective [Unknown]
